FAERS Safety Report 5083948-7 (Version None)
Quarter: 2006Q3

REPORT INFORMATION
  Report Type: 
  Country: None (occurrence: None)
  Receive Date: 20060727
  Receipt Date: 20060522
  Transmission Date: 20061208
  Serious: Yes (Other)
  Sender: FDA-Public Use
  Company Number: 2006068873

PATIENT
  Age: 57 Year
  Sex: Female
  Weight: 79.3795 kg

DRUGS (2)
  1. LYRICA [Suspect]
     Indication: PAIN
     Dosage: 250 MG (50 MG, UNKNOWN), ORAL
     Route: 048
     Dates: start: 20060314
  2. PERCOCET (OXCODONE HYDROCHLORIDE, PARACETAMOL) [Concomitant]

REACTIONS (1)
  - VISUAL DISTURBANCE [None]
